FAERS Safety Report 9821433 (Version 1)
Quarter: 2014Q1

REPORT INFORMATION
  Report Type: Spontaneous
  Country: US (occurrence: US)
  Receive Date: 20140116
  Receipt Date: 20140116
  Transmission Date: 20141002
  Serious: Yes (Other)
  Sender: FDA-Public Use
  Company Number: US-ROXANE LABORATORIES, INC.-2014-RO-00042RO

PATIENT
  Age: 61 Year
  Sex: Male

DRUGS (8)
  1. DEXAMETHASONE [Suspect]
     Indication: HODGKIN^S DISEASE
  2. CISPLATIN [Suspect]
     Indication: HODGKIN^S DISEASE
  3. CYTARABINE [Suspect]
     Indication: HODGKIN^S DISEASE
  4. GEMCITABINE [Suspect]
     Indication: HODGKIN^S DISEASE
  5. TENOFOVIR [Concomitant]
     Indication: HIV INFECTION
  6. EMTRICITABINE [Concomitant]
     Indication: HIV INFECTION
  7. DARUNAVIR [Concomitant]
     Indication: HIV INFECTION
  8. RITONAVIR [Concomitant]
     Indication: HIV INFECTION

REACTIONS (3)
  - Pancytopenia [Unknown]
  - Syncope [Unknown]
  - Autonomic neuropathy [Unknown]
